FAERS Safety Report 5890631-4 (Version None)
Quarter: 2008Q3

REPORT INFORMATION
  Report Type: 
  Country: None (occurrence: None)
  Receive Date: 20080922
  Receipt Date: 20080521
  Transmission Date: 20090109
  Serious: No
  Sender: FDA-Public Use
  Company Number: US-BAYER-200823684NA

PATIENT
  Sex: Female

DRUGS (3)
  1. CIPRO [Suspect]
     Indication: DRUG USE FOR UNKNOWN INDICATION
     Dosage: TOTAL DAILY DOSE: 750 MG  UNIT DOSE: 750 MG
     Route: 048
  2. BACTRIM DS [Concomitant]
  3. DOXYCYCLINE [Concomitant]

REACTIONS (1)
  - PLATELET COUNT DECREASED [None]
